FAERS Safety Report 21657237 (Version 2)
Quarter: 2022Q4

REPORT INFORMATION
  Report Type: Report from Study
  Country: PE (occurrence: PE)
  Receive Date: 20221129
  Receipt Date: 20221226
  Transmission Date: 20230113
  Serious: Yes (Hospitalization, Other)
  Sender: FDA-Public Use
  Company Number: PE-002147023-NVSC2022PE211718

PATIENT
  Sex: Female

DRUGS (2)
  1. KISQALI [Suspect]
     Active Substance: RIBOCICLIB
     Indication: Breast cancer
     Dosage: 600 MG, QD
     Route: 048
     Dates: start: 20220826
  2. KISQALI [Suspect]
     Active Substance: RIBOCICLIB
     Dosage: 3 DOSAGE FORM, QD
     Route: 065

REACTIONS (23)
  - Constipation [Unknown]
  - Dyschezia [Unknown]
  - Pain [Unknown]
  - Hepatitis [Unknown]
  - Metastases to bone [Unknown]
  - Listless [Unknown]
  - Pain in extremity [Unknown]
  - Dyspepsia [Unknown]
  - Oropharyngeal pain [Unknown]
  - Feeding disorder [Unknown]
  - Myalgia [Unknown]
  - Arthralgia [Unknown]
  - Somnolence [Unknown]
  - Gait inability [Unknown]
  - Malaise [Unknown]
  - Bone pain [Recovered/Resolved]
  - Product dose omission in error [Unknown]
  - Nausea [Not Recovered/Not Resolved]
  - Vomiting [Unknown]
  - Headache [Unknown]
  - Dizziness [Unknown]
  - Fatigue [Not Recovered/Not Resolved]
  - Drug ineffective [Unknown]
